FAERS Safety Report 11906040 (Version 1)
Quarter: 2016Q1

REPORT INFORMATION
  Report Type: Spontaneous
  Country: NL (occurrence: NL)
  Receive Date: 20160111
  Receipt Date: 20160111
  Transmission Date: 20160526
  Serious: Yes (Life-Threatening, Hospitalization, Other)
  Sender: FDA-Public Use
  Company Number: NL-BAYER-2015-498827

PATIENT
  Age: 76 Year
  Sex: Male

DRUGS (13)
  1. TIOTROPIUM BROMIDE [Concomitant]
     Active Substance: TIOTROPIUM BROMIDE
     Dosage: 18 ?G, QD
  2. PREDNISOLONE. [Suspect]
     Active Substance: PREDNISOLONE
     Dosage: UNK
  3. TAMSULOSIN [Concomitant]
     Active Substance: TAMSULOSIN
     Dosage: 0.4 MG, QD
  4. MONTELUKAST [Concomitant]
     Active Substance: MONTELUKAST SODIUM
     Dosage: 10 MG, QD
  5. OMEPRAZOLE. [Concomitant]
     Active Substance: OMEPRAZOLE
     Dosage: 20 MG, QD
  6. CIPROFLOXACIN. [Suspect]
     Active Substance: CIPROFLOXACIN
     Indication: PROSTATITIS
     Dosage: UNK
  7. DESLORATADINE. [Concomitant]
     Active Substance: DESLORATADINE
     Dosage: 5 MG, QD
  8. TELMISARTAN. [Concomitant]
     Active Substance: TELMISARTAN
     Dosage: 80 MG, QD
  9. ACETYLSALICYLIC ACID [Concomitant]
     Active Substance: ASPIRIN
     Dosage: 80 MG, QD
  10. GALENIC /PARACETAMOL/CODEINE/ [Concomitant]
     Active Substance: ACETAMINOPHEN\CODEINE PHOSPHATE
     Dosage: 500/20 MG, TID
  11. DILTIAZEM [Concomitant]
     Active Substance: DILTIAZEM
     Dosage: 200 MG, QD
  12. CEFUROXIME. [Concomitant]
     Active Substance: CEFUROXIME
     Dosage: UNK
  13. BUDESONIDE W/FORMOTEROL FUMARATE [Concomitant]
     Active Substance: BUDESONIDE\FORMOTEROL FUMARATE
     Dosage: 400/12 ?G, BID

REACTIONS (3)
  - Respiratory failure [None]
  - Bulbar palsy [None]
  - Myasthenia gravis crisis [None]
